FAERS Safety Report 9088129 (Version 1)
Quarter: 2013Q1

REPORT INFORMATION
  Report Type: Report from Study
  Country: US (occurrence: US)
  Receive Date: 20130130
  Receipt Date: 20130130
  Transmission Date: 20140127
  Serious: No
  Sender: FDA-Public Use
  Company Number: US-ABBOTT-12P-163-0953563-00

PATIENT
  Age: 31 Year
  Sex: Female

DRUGS (6)
  1. HUMIRA 40 MG/0.8 ML PEN [Suspect]
     Indication: CROHN^S DISEASE
     Route: 050
     Dates: start: 20120525
  2. POTASSIUM [Concomitant]
     Indication: PRODUCT USED FOR UNKNOWN INDICATION
  3. IMURAN [Concomitant]
     Indication: PRODUCT USED FOR UNKNOWN INDICATION
  4. ZOLOFT [Concomitant]
     Indication: AFFECTIVE DISORDER
     Dosage: DAILY
  5. TRISPRINTEC [Concomitant]
     Indication: CONTRACEPTION
     Dosage: 1 TABLET DAILY
  6. TRISPRINTEC [Concomitant]
     Indication: MENSTRUATION IRREGULAR

REACTIONS (1)
  - Injection site pain [Recovering/Resolving]
